FAERS Safety Report 22148626 (Version 3)
Quarter: 2023Q4

REPORT INFORMATION
  Report Type: Spontaneous
  Country: JP (occurrence: JP)
  Receive Date: 20230328
  Receipt Date: 20231103
  Transmission Date: 20240110
  Serious: Yes (Other)
  Sender: FDA-Public Use
  Company Number: JP-shionogiph-202303217_OXN_P_1

PATIENT
  Age: 54 Year
  Sex: Male
  Weight: 70 kg

DRUGS (15)
  1. OXYCODONE HYDROCHLORIDE [Suspect]
     Active Substance: OXYCODONE HYDROCHLORIDE
     Indication: Epithelioid sarcoma
     Dosage: 60 MILLIGRAM
     Route: 048
     Dates: start: 202211, end: 20230329
  2. OXYCODONE HYDROCHLORIDE [Suspect]
     Active Substance: OXYCODONE HYDROCHLORIDE
     Indication: Metastases to muscle
  3. METHADONE HYDROCHLORIDE [Suspect]
     Active Substance: METHADONE HYDROCHLORIDE
     Indication: Epithelioid sarcoma
     Dosage: 5 MILLIGRAM, Q8H
     Route: 048
     Dates: start: 20230306, end: 20230312
  4. METHADONE HYDROCHLORIDE [Suspect]
     Active Substance: METHADONE HYDROCHLORIDE
     Indication: Metastases to muscle
     Dosage: 15 MILLIGRAM, Q8H
     Route: 048
     Dates: start: 20230313, end: 20230319
  5. METHADONE HYDROCHLORIDE [Suspect]
     Active Substance: METHADONE HYDROCHLORIDE
     Dosage: 20 MILLIGRAM, Q8H
     Route: 048
     Dates: start: 20230320, end: 20230320
  6. METHADONE HYDROCHLORIDE [Suspect]
     Active Substance: METHADONE HYDROCHLORIDE
     Dosage: 30 MILLIGRAM, DAILY
     Route: 048
     Dates: start: 20230321, end: 20230330
  7. HYDROMORPHONE HYDROCHLORIDE [Concomitant]
     Active Substance: HYDROMORPHONE HYDROCHLORIDE
     Indication: Product used for unknown indication
     Dosage: 36 MILLIGRAM
     Route: 042
     Dates: start: 20230302, end: 20230314
  8. HYDROMORPHONE HYDROCHLORIDE [Concomitant]
     Active Substance: HYDROMORPHONE HYDROCHLORIDE
     Dosage: UNK
     Route: 042
     Dates: end: 20230323
  9. HYDROMORPHONE HYDROCHLORIDE [Concomitant]
     Active Substance: HYDROMORPHONE HYDROCHLORIDE
     Dosage: 20 MILLIGRAM, DAILY
     Route: 042
     Dates: start: 20230329, end: 20230329
  10. HYDROMORPHONE HYDROCHLORIDE [Concomitant]
     Active Substance: HYDROMORPHONE HYDROCHLORIDE
     Dosage: 30 MILLIGRAM, DAILY
     Route: 042
     Dates: start: 20230330
  11. CYMBALTA [Concomitant]
     Active Substance: DULOXETINE HYDROCHLORIDE
     Indication: Product used for unknown indication
     Dosage: 40 MILLIGRAM
     Route: 048
     Dates: start: 202202, end: 20230329
  12. LYRICA [Concomitant]
     Active Substance: PREGABALIN
     Indication: Epithelioid sarcoma
     Dosage: 300 MILLIGRAM, Q12H
     Route: 048
     Dates: start: 202211, end: 20230314
  13. LYRICA [Concomitant]
     Active Substance: PREGABALIN
     Indication: Metastases to muscle
  14. LOXOPROFEN SODIUM [Concomitant]
     Active Substance: LOXOPROFEN SODIUM
     Indication: Product used for unknown indication
     Dosage: 60 MILLIGRAM, Q8H
     Route: 048
     Dates: start: 202111, end: 20230330
  15. RIVOTRIL [Concomitant]
     Active Substance: CLONAZEPAM
     Indication: Product used for unknown indication
     Dosage: 1 MILLIGRAM, Q12H
     Route: 048
     Dates: start: 20230227, end: 20230330

REACTIONS (3)
  - Electrocardiogram QT prolonged [Not Recovered/Not Resolved]
  - Somnolence [Not Recovered/Not Resolved]
  - Supraventricular extrasystoles [Recovered/Resolved]

NARRATIVE: CASE EVENT DATE: 20230306
